FAERS Safety Report 7067304-8 (Version None)
Quarter: 2010Q4

REPORT INFORMATION
  Report Type: 
  Country: None (occurrence: None)
  Receive Date: 20101022
  Receipt Date: 20101022
  Transmission Date: 20110411
  Serious: Yes (Hospitalization, Other)
  Sender: FDA-Public Use
  Company Number: None

PATIENT
  Age: 27 Year
  Sex: Female
  Weight: 47.6277 kg

DRUGS (1)
  1. NALTREXONE 200 MG UNKNOWN [Suspect]
     Indication: OBSESSIVE-COMPULSIVE DISORDER
     Dosage: 200 MG 1 DAILY
     Dates: start: 20010501, end: 20100901

REACTIONS (7)
  - ABDOMINAL PAIN [None]
  - GASTRIC DISORDER [None]
  - HALLUCINATION, AUDITORY [None]
  - RESPIRATORY ARREST [None]
  - SCREAMING [None]
  - SUICIDE ATTEMPT [None]
  - WITHDRAWAL SYNDROME [None]
